FAERS Safety Report 25986407 (Version 1)
Quarter: 2025Q4

REPORT INFORMATION
  Report Type: Spontaneous
  Country: EU (occurrence: EU)
  Receive Date: 20251101
  Receipt Date: 20251101
  Transmission Date: 20260118
  Serious: Yes (Hospitalization, Disabling)
  Sender: TEVA
  Company Number: None

PATIENT
  Age: 67 Year
  Sex: Female
  Weight: 56 kg

DRUGS (2)
  1. CARBOPLATIN [Suspect]
     Active Substance: CARBOPLATIN
     Indication: Transitional cell carcinoma
     Route: 042
     Dates: start: 20250613, end: 20250801
  2. CISPLATIN [Suspect]
     Active Substance: CISPLATIN
     Indication: Transitional cell carcinoma
     Dosage: TIME INTERVAL: CYCLICAL
     Route: 042
     Dates: start: 20250523, end: 20250530

REACTIONS (4)
  - Papillitis [Recovering/Resolving]
  - Optic disc haemorrhage [Recovering/Resolving]
  - Myocarditis [Not Recovered/Not Resolved]
  - Papilloedema [Recovering/Resolving]

NARRATIVE: CASE EVENT DATE: 20250806
